FAERS Safety Report 8974379 (Version 1)
Quarter: 2012Q4

REPORT INFORMATION
  Report Type: Spontaneous
  Country: DE (occurrence: None)
  Receive Date: 20121213
  Receipt Date: 20121213
  Transmission Date: 20130627
  Serious: Yes (Life-Threatening)
  Sender: FDA-Public Use
  Company Number: 2012MA013817

PATIENT
  Age: 33 Year
  Sex: Female

DRUGS (1)
  1. ENULOSE [Suspect]
     Indication: CONSTIPATION
     Route: 048

REACTIONS (3)
  - Renal failure [None]
  - Overdose [None]
  - Dehydration [None]
